FAERS Safety Report 8138986-4 (Version None)
Quarter: 2012Q1

REPORT INFORMATION
  Report Type: 
  Country: None (occurrence: None)
  Receive Date: 20120215
  Receipt Date: 20120213
  Transmission Date: 20120608
  Serious: No
  Sender: FDA-Public Use
  Company Number: US-PFIZER INC-2012022136

PATIENT
  Sex: Female
  Weight: 48.073 kg

DRUGS (7)
  1. CHANTIX [Suspect]
     Indication: SMOKING CESSATION THERAPY
     Dosage: 0.5 MG, 1X/DAY
     Route: 048
     Dates: start: 20120114, end: 20120101
  2. HYDROCHLOROTHIAZIDE [Concomitant]
     Dosage: 12.5 MG, 1X/DAY
  3. CHANTIX [Suspect]
     Dosage: 0.5 MG, 2X/DAY
     Route: 048
     Dates: start: 20120101
  4. ATENOLOL [Concomitant]
     Dosage: 50 MG, 1X/DAY
  5. LISINOPRIL [Concomitant]
     Dosage: 40 MG, 1X/DAY
  6. LIPITOR [Concomitant]
     Dosage: 40 MG, 1X/DAY
  7. MELOXICAM [Concomitant]
     Dosage: 15 MG, 1X/DAY

REACTIONS (3)
  - ABDOMINAL PAIN UPPER [None]
  - ABDOMINAL DISCOMFORT [None]
  - NAUSEA [None]
